FAERS Safety Report 10932123 (Version 1)
Quarter: 2015Q1

REPORT INFORMATION
  Report Type: Spontaneous
  Country: US (occurrence: None)
  Receive Date: 20150212
  Receipt Date: 20150212
  Transmission Date: 20150721
  Serious: Yes (Other)
  Sender: FDA-Public Use
  Company Number: TPA2011A00425

PATIENT

DRUGS (1)
  1. ULORIC [Suspect]
     Active Substance: FEBUXOSTAT

REACTIONS (1)
  - Cerebrovascular accident [None]
